FAERS Safety Report 19883905 (Version 1)
Quarter: 2021Q3

REPORT INFORMATION
  Report Type: Spontaneous
  Country: US (occurrence: US)
  Receive Date: 20210926
  Receipt Date: 20210926
  Transmission Date: 20211014
  Serious: No
  Sender: FDA-Public Use
  Company Number: None

PATIENT
  Age: 43 Year
  Sex: Female

DRUGS (1)
  1. REGEN?COV [Suspect]
     Active Substance: CASIRIVIMAB\IMDEVIMAB
     Dosage: ?          OTHER FREQUENCY:ONCE;?
     Route: 042

REACTIONS (6)
  - Fatigue [None]
  - Head discomfort [None]
  - Throat tightness [None]
  - Anaphylactic reaction [None]
  - Infusion related reaction [None]
  - Flushing [None]

NARRATIVE: CASE EVENT DATE: 20210809
